FAERS Safety Report 13150615 (Version 15)
Quarter: 2017Q3

REPORT INFORMATION
  Report Type: Report from Study
  Country: KR (occurrence: KR)
  Receive Date: 20170125
  Receipt Date: 20170710
  Transmission Date: 20171127
  Serious: Yes (Death, Life-Threatening, Hospitalization)
  Sender: FDA-Public Use
  Company Number: KR-PFIZER INC-2017023607

PATIENT
  Age: 69 Year
  Sex: Male
  Weight: 84 kg

DRUGS (8)
  1. RIVOTRIL [Concomitant]
     Active Substance: CLONAZEPAM
     Indication: RESTLESS LEGS SYNDROME
     Dosage: 0.25, 1X/DAY
     Route: 048
     Dates: start: 20160926, end: 20170114
  2. LYRICA [Concomitant]
     Active Substance: PREGABALIN
     Indication: RESTLESS LEGS SYNDROME
     Dosage: 75 MG, 2X/DAY
     Route: 048
     Dates: start: 20161031, end: 20170117
  3. DOCETAXEL. [Suspect]
     Active Substance: DOCETAXEL
     Indication: NON-SMALL CELL LUNG CANCER
     Dosage: 143 MG, CYCLIC(ONCE EVERY 3 WEEKS)
     Route: 042
     Dates: start: 20170109, end: 20170109
  4. ULCERLMIN [Concomitant]
     Active Substance: SUCRALFATE
     Indication: GASTRITIS
     Dosage: 250 MG, 3X/DAY
     Route: 048
     Dates: start: 20161226
  5. IRCODON [Concomitant]
     Active Substance: OXYCODONE HYDROCHLORIDE
     Indication: PAIN
     Dosage: 10, AS NEEDED
     Route: 048
     Dates: start: 20161212, end: 20170110
  6. REQUIP [Concomitant]
     Active Substance: ROPINIROLE HYDROCHLORIDE
     Indication: RESTLESS LEGS SYNDROME
     Dosage: 75 MG, 2X/DAY
     Route: 048
     Dates: start: 20160801, end: 20170114
  7. ULCERLMIN [Concomitant]
     Active Substance: SUCRALFATE
     Dosage: 250 MG, 3X/DAY
     Route: 048
     Dates: start: 20170113, end: 20170114
  8. ULCERLMIN [Concomitant]
     Active Substance: SUCRALFATE
     Indication: DYSPEPSIA
     Dosage: 250 MG, 2X/DAY
     Route: 048
     Dates: start: 20170111, end: 20170112

REACTIONS (3)
  - Febrile neutropenia [Fatal]
  - Septic shock [Fatal]
  - Cardiac arrest [Not Recovered/Not Resolved]

NARRATIVE: CASE EVENT DATE: 20170116
